FAERS Safety Report 19612878 (Version 1)
Quarter: 2021Q3

REPORT INFORMATION
  Report Type: Spontaneous
  Country: IT (occurrence: IT)
  Receive Date: 20210727
  Receipt Date: 20210727
  Transmission Date: 20211014
  Serious: Yes (Life-Threatening, Hospitalization, Other)
  Sender: FDA-Public Use
  Company Number: IT-ACCORD-227448

PATIENT
  Age: 33 Year
  Sex: Female

DRUGS (7)
  1. METOCLOPRAMIDE. [Suspect]
     Active Substance: METOCLOPRAMIDE
     Indication: DYSPEPSIA
     Dosage: FOR 2 DAYS, AND TWICE A DAY FOR THE 5 DAYS BEFORE HOSPITAL ADMISSION
     Route: 048
  2. METOCLOPRAMIDE. [Suspect]
     Active Substance: METOCLOPRAMIDE
     Indication: NAUSEA
     Dosage: FOR 2 DAYS, AND TWICE A DAY FOR THE 5 DAYS BEFORE HOSPITAL ADMISSION
     Route: 048
  3. LABETALOL [Suspect]
     Active Substance: LABETALOL\LABETALOL HYDROCHLORIDE
     Indication: OEDEMA PERIPHERAL
     Dosage: OVER 2 MIN, 1 MIN
     Route: 040
  4. METHYLDOPA. [Suspect]
     Active Substance: METHYLDOPA
     Indication: HYPERTENSION
     Dosage: THRICE A DAY
  5. NIFEDIPINE. [Suspect]
     Active Substance: NIFEDIPINE
     Indication: HYPERTENSION
     Dosage: EXTENDED?RELEASE
  6. INSULIN LISPRO/INSULIN LISPRO PROTAMINE SUSPE [Concomitant]
     Active Substance: INSULIN LISPRO
     Indication: GESTATIONAL DIABETES
     Dosage: 10U AT 12.00 A.M, 6U AT 7.00 A.M, 10U AT 06.00 P.M
     Route: 058
  7. INSULIN GLARGINE [Concomitant]
     Active Substance: INSULIN GLARGINE
     Indication: GESTATIONAL DIABETES
     Dosage: 15U AT 09.00 P.M
     Route: 058

REACTIONS (5)
  - Unmasking of previously unidentified disease [Recovered/Resolved]
  - Hypertension [Recovered/Resolved]
  - Phaeochromocytoma [Recovered/Resolved]
  - Maternal exposure during pregnancy [Unknown]
  - Condition aggravated [Recovered/Resolved]
